FAERS Safety Report 14143049 (Version 2)
Quarter: 2017Q4

REPORT INFORMATION
  Report Type: Report from Study
  Country: CA (occurrence: CA)
  Receive Date: 20171030
  Receipt Date: 20171218
  Transmission Date: 20180321
  Serious: Yes (Death)
  Sender: FDA-Public Use
  Company Number: CA-HLSUS-2017-CA-001118

PATIENT
  Age: 34 Year
  Sex: Male

DRUGS (3)
  1. CLOZARIL [Suspect]
     Active Substance: CLOZAPINE
     Dosage: UNKNOWN DOSE
     Route: 048
     Dates: start: 20150217
  2. VALPROIC ACID. [Concomitant]
     Active Substance: VALPROIC ACID
  3. LURASIDONE [Concomitant]
     Active Substance: LURASIDONE

REACTIONS (2)
  - Fall [Fatal]
  - Death [Fatal]

NARRATIVE: CASE EVENT DATE: 20171014
